FAERS Safety Report 8415686-4 (Version None)
Quarter: 2012Q2

REPORT INFORMATION
  Report Type: 
  Country: None (occurrence: None)
  Receive Date: 20120606
  Receipt Date: 20120531
  Transmission Date: 20120825
  Serious: Yes (Other)
  Sender: FDA-Public Use
  Company Number: US-JNJFOC-20120413229

PATIENT
  Sex: Male
  Weight: 113.4 kg

DRUGS (7)
  1. AMLODIPINE [Concomitant]
     Indication: BLOOD PRESSURE
     Route: 065
     Dates: start: 20090101
  2. VALSARTAN [Concomitant]
     Indication: BLOOD PRESSURE
     Route: 065
     Dates: start: 20090101
  3. LEVOTHYROXINE SODIUM [Concomitant]
     Indication: THYROID DISORDER
     Route: 065
     Dates: start: 20120101
  4. ATENOLOL [Concomitant]
     Indication: BLOOD PRESSURE
     Route: 065
     Dates: start: 20090101
  5. LEVOTHYROXINE SODIUM [Concomitant]
     Indication: HORMONE THERAPY
     Route: 065
     Dates: start: 20120101
  6. MINOXIDIL [Suspect]
     Dosage: 1/2 CAPFUL
     Route: 061
     Dates: start: 20120101, end: 20120101
  7. MINOXIDIL [Suspect]
     Indication: ALOPECIA
     Dosage: 1/2 CAPFUL
     Route: 061
     Dates: start: 20120101, end: 20120427

REACTIONS (4)
  - SKIN INFECTION [None]
  - APPLICATION SITE EXFOLIATION [None]
  - APPLICATION SITE EROSION [None]
  - APPLICATION SITE PRURITUS [None]
